FAERS Safety Report 15860719 (Version 2)
Quarter: 2019Q1

REPORT INFORMATION
  Report Type: Spontaneous
  Country: US (occurrence: US)
  Receive Date: 20190124
  Receipt Date: 20190131
  Transmission Date: 20190417
  Serious: No
  Sender: FDA-Public Use
  Company Number: US-AMGEN-USASP2019011797

PATIENT
  Age: 62 Year
  Sex: Male

DRUGS (4)
  1. PAXIL [Concomitant]
     Active Substance: PAROXETINE HYDROCHLORIDE
     Dosage: 30 MG, QD
  2. REPATHA [Suspect]
     Active Substance: EVOLOCUMAB
     Indication: BLOOD CHOLESTEROL INCREASED
     Dosage: 140 MG, QMO
     Route: 065
     Dates: start: 201807, end: 20181224
  3. ASPIRIN. [Concomitant]
     Active Substance: ASPIRIN
     Dosage: 81 MG, QD
  4. BRILINTA [Concomitant]
     Active Substance: TICAGRELOR
     Dosage: 60 MG, BID

REACTIONS (4)
  - Condition aggravated [Unknown]
  - Abdominal pain [Recovered/Resolved]
  - Blood urine present [Recovered/Resolved]
  - Off label use [Unknown]
